FAERS Safety Report 18457298 (Version 2)
Quarter: 2021Q1

REPORT INFORMATION
  Report Type: Spontaneous
  Country: JP (occurrence: JP)
  Receive Date: 20201030
  Receipt Date: 20210310
  Transmission Date: 20210419
  Serious: Yes (Hospitalization)
  Sender: FDA-Public Use
  Company Number: JP-JNJFOC-A-CH2016-146223

PATIENT
  Age: 87 Year
  Sex: Female
  Weight: 52.75 kg

DRUGS (28)
  1. DIART [Suspect]
     Active Substance: AZOSEMIDE
     Route: 048
     Dates: start: 20170413
  2. MOSAPRIDE CITRATE [Concomitant]
     Active Substance: MOSAPRIDE CITRATE
     Indication: CHRONIC GASTRITIS
     Route: 048
  3. SENNOSIDE [Concomitant]
     Active Substance: SENNOSIDES
     Indication: CONSTIPATION
     Route: 048
  4. WARFARIN [Concomitant]
     Active Substance: WARFARIN
     Indication: PULMONARY EMBOLISM
     Route: 048
  5. OXYGEN. [Concomitant]
     Active Substance: OXYGEN
     Indication: PRODUCT USED FOR UNKNOWN INDICATION
  6. OPSUMIT [Suspect]
     Active Substance: MACITENTAN
     Indication: PULMONARY ARTERIAL HYPERTENSION
     Route: 048
     Dates: start: 20161031, end: 20161103
  7. OPSUMIT [Suspect]
     Active Substance: MACITENTAN
     Route: 048
     Dates: start: 20161104
  8. REMINYL [Concomitant]
     Active Substance: GALANTAMINE
     Indication: DEMENTIA
     Route: 048
  9. MICARDIS [Concomitant]
     Active Substance: TELMISARTAN
     Indication: HYPERTENSION
     Route: 048
  10. DIART [Suspect]
     Active Substance: AZOSEMIDE
     Dosage: 15 MG, QD
     Route: 048
     Dates: start: 20161201, end: 20161217
  11. DIART [Suspect]
     Active Substance: AZOSEMIDE
     Dosage: 30 MG, QD
     Route: 048
     Dates: start: 20161218, end: 20170301
  12. ETIZOLAM [Concomitant]
     Active Substance: ETIZOLAM
     Route: 048
  13. MAGMITT [Concomitant]
     Active Substance: MAGNESIUM OXIDE
     Indication: CONSTIPATION
     Route: 048
  14. AMLODIPINE [Concomitant]
     Active Substance: AMLODIPINE BESYLATE
     Route: 048
  15. DIART [Suspect]
     Active Substance: AZOSEMIDE
     Dosage: 30 MG, QD
     Route: 048
     Dates: start: 20170413
  16. DIART [Suspect]
     Active Substance: AZOSEMIDE
     Indication: RIGHT VENTRICULAR FAILURE
     Dosage: 30 MG, QD
     Route: 048
  17. ATORVASTATIN [Concomitant]
     Active Substance: ATORVASTATIN
     Indication: HYPERLIPIDAEMIA
     Route: 048
  18. CARELOAD [Concomitant]
     Active Substance: BERAPROST SODIUM
     Indication: PULMONARY ARTERIAL HYPERTENSION
     Route: 048
  19. MEILAX [Concomitant]
     Active Substance: ETHYL LOFLAZEPATE
     Indication: ANXIETY DISORDER
     Route: 048
  20. FRANDOL S [Concomitant]
     Active Substance: ISOSORBIDE DINITRATE
     Indication: ANGINA PECTORIS
     Route: 062
  21. FUROSEMIDE. [Concomitant]
     Active Substance: FUROSEMIDE
     Route: 048
  22. DIART [Suspect]
     Active Substance: AZOSEMIDE
     Dosage: 15 MG, QD
     Route: 048
     Dates: start: 20170302, end: 20170412
  23. ETIZOLAM [Concomitant]
     Active Substance: ETIZOLAM
     Indication: CHRONIC GASTRITIS
     Route: 048
  24. AMLODIPINE [Concomitant]
     Active Substance: AMLODIPINE BESYLATE
     Indication: HYPERTENSION
     Route: 048
  25. EBRANTIL [Concomitant]
     Active Substance: URAPIDIL
     Indication: HYPERTENSION
  26. RIVASTACH [Concomitant]
     Active Substance: RIVASTIGMINE
     Indication: DEMENTIA
     Route: 062
  27. TOLVAPTAN [Concomitant]
     Active Substance: TOLVAPTAN
     Indication: RIGHT VENTRICULAR FAILURE
     Route: 048
  28. THIATON [Concomitant]
     Active Substance: TIQUIZIUM BROMIDE
     Indication: CHRONIC GASTRITIS
     Route: 048

REACTIONS (3)
  - Right ventricular failure [Recovering/Resolving]
  - Renal impairment [Recovering/Resolving]
  - Anaemia [Recovering/Resolving]

NARRATIVE: CASE EVENT DATE: 20161202
